FAERS Safety Report 17956290 (Version 1)
Quarter: 2020Q2

REPORT INFORMATION
  Report Type: Spontaneous
  Country: GB (occurrence: GB)
  Receive Date: 20200629
  Receipt Date: 20200629
  Transmission Date: 20200714
  Serious: Yes (Other)
  Sender: FDA-Public Use
  Company Number: GB-ACCORD-187213

PATIENT
  Age: 38 Year
  Sex: Female
  Weight: 52 kg

DRUGS (10)
  1. SERTRALINE [Suspect]
     Active Substance: SERTRALINE HYDROCHLORIDE
     Indication: PRODUCT USED FOR UNKNOWN INDICATION
     Dates: start: 20181105
  2. AMITRIPTYLINE [Concomitant]
     Active Substance: AMITRIPTYLINE
     Dosage: TAKE ONE OR TWO TABLET AT NIGHT.
     Dates: start: 20181123
  3. CLONAZEPAM. [Concomitant]
     Active Substance: CLONAZEPAM
     Dosage: AT NIGHT
     Dates: start: 20180503
  4. HYDROXOCOBALAMIN [Concomitant]
     Active Substance: HYDROXOCOBALAMIN
     Dosage: AS DIRECTED.
     Dates: start: 20200203
  5. FUROSEMIDE. [Concomitant]
     Active Substance: FUROSEMIDE
     Dosage: MORNING.
     Dates: start: 20200608
  6. NEOMAG [Concomitant]
     Dosage: FOR 4 DAYS THE...
     Dates: start: 20181018
  7. FOLIC ACID. [Concomitant]
     Active Substance: FOLIC ACID
     Dates: start: 20180503
  8. MIRTAZAPINE. [Concomitant]
     Active Substance: MIRTAZAPINE
     Dosage: AT BEDTIME.
     Dates: start: 20190205
  9. SOLVAZINC [Concomitant]
     Dates: start: 20181018
  10. GABAPENTIN. [Concomitant]
     Active Substance: GABAPENTIN
     Dates: start: 20200604

REACTIONS (1)
  - Photodermatosis [Not Recovered/Not Resolved]
